FAERS Safety Report 25402451 (Version 1)
Quarter: 2025Q2

REPORT INFORMATION
  Report Type: Spontaneous
  Country: DZ (occurrence: DZ)
  Receive Date: 20250605
  Receipt Date: 20250605
  Transmission Date: 20250716
  Serious: Yes (Death, Other)
  Sender: PFIZER
  Company Number: DZ-PFIZER INC-PV202500067013

PATIENT
  Sex: Male

DRUGS (6)
  1. TIGECYCLINE [Suspect]
     Active Substance: TIGECYCLINE
     Route: 042
  2. TIGECYCLINE [Suspect]
     Active Substance: TIGECYCLINE
     Route: 042
  3. TIGECYCLINE [Suspect]
     Active Substance: TIGECYCLINE
     Route: 037
  4. COLISTIN [Suspect]
     Active Substance: COLISTIN
     Route: 042
  5. COLISTIN [Suspect]
     Active Substance: COLISTIN
     Route: 037
  6. COLISTIN [Suspect]
     Active Substance: COLISTIN
     Route: 037

REACTIONS (2)
  - Thrombosis [Fatal]
  - Off label use [Unknown]
